FAERS Safety Report 15316422 (Version 1)
Quarter: 2018Q4

REPORT INFORMATION
  Report Type: Spontaneous
  Country: FR (occurrence: FR)
  Receive Date: 20180824
  Receipt Date: 20180824
  Transmission Date: 20190204
  Serious: Yes (Hospitalization)
  Sender: FDA-Public Use
  Company Number: FR-PFIZER INC-2018337412

PATIENT
  Age: 68 Year
  Sex: Male
  Weight: 82 kg

DRUGS (11)
  1. ONDANSETRON ACCORD [Suspect]
     Active Substance: ONDANSETRON
     Indication: PROPHYLAXIS OF NAUSEA AND VOMITING
     Dosage: 8 MG, 1X/DAY
     Route: 042
     Dates: start: 20180406, end: 20180406
  2. ZAMUDOL 50 MG PROLONGED-RELEASE CAPSULE [Suspect]
     Active Substance: TRAMADOL HYDROCHLORIDE
     Indication: PAIN
     Dosage: 50 MG, AS NEEDED
     Route: 048
  3. EMEND [Suspect]
     Active Substance: APREPITANT
     Indication: PROPHYLAXIS OF NAUSEA AND VOMITING
     Dosage: 125 MG, 1X/DAY
     Route: 048
     Dates: start: 20180406, end: 20180406
  4. EMEND [Suspect]
     Active Substance: APREPITANT
     Indication: PROPHYLAXIS OF NAUSEA AND VOMITING
     Dosage: 80 MG, 1X/DAY
     Route: 048
     Dates: start: 20180407, end: 20180408
  5. OXALIPLATIN. [Suspect]
     Active Substance: OXALIPLATIN
     Indication: COLON CANCER METASTATIC
     Dosage: 130 MG, 1X/DAY
     Route: 042
     Dates: start: 20180406, end: 20180406
  6. INNOHEP [Suspect]
     Active Substance: TINZAPARIN SODIUM
     Indication: PULMONARY EMBOLISM
     Dosage: UNK
     Route: 058
     Dates: start: 201712, end: 20180421
  7. FLUOROURACILE ACCORD [Suspect]
     Active Substance: FLUOROURACIL
     Indication: COLON CANCER METASTATIC
     Dosage: 420 MG, 1X/DAY
     Route: 042
     Dates: start: 20180406, end: 20180406
  8. METHYLPREDNISOLONE MYLAN [Suspect]
     Active Substance: METHYLPREDNISOLONE
     Indication: PROPHYLAXIS OF NAUSEA AND VOMITING
     Dosage: 60 MG, 1X/DAY
     Route: 042
     Dates: start: 20180406, end: 20180406
  9. AVASTIN [Suspect]
     Active Substance: BEVACIZUMAB
     Indication: COLON CANCER METASTATIC
     Dosage: 420 MG, 1X/DAY
     Route: 042
     Dates: start: 20180406, end: 20180406
  10. FLUOROURACILE ACCORD [Suspect]
     Active Substance: FLUOROURACIL
     Dosage: 5000 MG, UNK
     Route: 042
     Dates: start: 20180406, end: 20180408
  11. LEVOFOLINATE CALCIUM ZENTIVA [Suspect]
     Active Substance: LEVOLEUCOVORIN CALCIUM
     Indication: CHEMOTHERAPY TOXICITY ATTENUATION
     Dosage: 412 MG, 1X/DAY
     Route: 042
     Dates: start: 20180406, end: 20180406

REACTIONS (5)
  - Venoocclusive liver disease [Recovered/Resolved]
  - Rectal haemorrhage [Recovered/Resolved]
  - Haematemesis [Recovered/Resolved]
  - Varices oesophageal [Recovered/Resolved]
  - Portal hypertension [Recovered/Resolved]

NARRATIVE: CASE EVENT DATE: 20180419
